FAERS Safety Report 8022515-X (Version None)
Quarter: 2012Q1

REPORT INFORMATION
  Report Type: 
  Country: None (occurrence: None)
  Receive Date: 20120104
  Receipt Date: 20111228
  Transmission Date: 20120608
  Serious: Yes (Hospitalization, Congenital Anomaly)
  Sender: FDA-Public Use
  Company Number: US-GLAXOSMITHKLINE-A0884623A

PATIENT
  Sex: Male

DRUGS (4)
  1. WELLBUTRIN XL [Concomitant]
     Route: 064
  2. KLONOPIN [Concomitant]
     Dates: start: 20071017
  3. PAROXETINE HYDROCHLORIDE [Suspect]
     Indication: DEPRESSION
     Dosage: 20MG TWICE PER DAY
     Route: 064
     Dates: start: 20050424, end: 20111118
  4. PAXIL [Suspect]
     Indication: DEPRESSION
     Dosage: 20MG TWICE PER DAY
     Route: 048

REACTIONS (12)
  - CONGENITAL AORTIC ANOMALY [None]
  - HEART VALVE INCOMPETENCE [None]
  - CONGENITAL AORTIC STENOSIS [None]
  - RENAL DYSPLASIA [None]
  - VESICOURETERIC REFLUX [None]
  - FOETAL EXPOSURE DURING PREGNANCY [None]
  - BICUSPID AORTIC VALVE [None]
  - CONGENITAL HEPATIC FIBROSIS [None]
  - RENAL FAILURE CHRONIC [None]
  - LEFT VENTRICLE OUTFLOW TRACT OBSTRUCTION [None]
  - PULMONARY VALVE STENOSIS CONGENITAL [None]
  - HEPATIC FUNCTION ABNORMAL [None]
